FAERS Safety Report 13141708 (Version 2)
Quarter: 2017Q2

REPORT INFORMATION
  Report Type: Report from Study
  Country: US (occurrence: US)
  Receive Date: 20170124
  Receipt Date: 20170410
  Transmission Date: 20170830
  Serious: Yes (Other)
  Sender: FDA-Public Use
  Company Number: PHHY2017US009073

PATIENT
  Age: 13 Year
  Sex: Male
  Weight: 37.9 kg

DRUGS (13)
  1. GSK1120212 [Suspect]
     Active Substance: TRAMETINIB
     Indication: CENTRAL NERVOUS SYSTEM NEOPLASM
  2. DABRAFENIB [Suspect]
     Active Substance: DABRAFENIB
     Indication: ASTROCYTOMA, LOW GRADE
     Route: 048
  3. DABRAFENIB [Suspect]
     Active Substance: DABRAFENIB
     Indication: CENTRAL NERVOUS SYSTEM NEOPLASM
  4. SERTRALINE [Concomitant]
     Active Substance: SERTRALINE HYDROCHLORIDE
     Indication: PRODUCT USED FOR UNKNOWN INDICATION
     Dosage: 1 DF, QD (AT BEDTIME)
     Route: 048
  5. PENTAMIDINE [Concomitant]
     Active Substance: PENTAMIDINE
     Indication: PRODUCT USED FOR UNKNOWN INDICATION
     Dosage: 1 DF, (EVERY 4 WEEKS)
  6. VITAMIN D3 [Concomitant]
     Active Substance: CHOLECALCIFEROL
     Indication: PRODUCT USED FOR UNKNOWN INDICATION
     Dosage: 1 DF, QMO
     Route: 048
  7. AMOXICILLIN. [Concomitant]
     Active Substance: AMOXICILLIN
     Indication: PRODUCT USED FOR UNKNOWN INDICATION
     Dosage: 2 DF, QD (1 HOUR PRIOR TO DENTAL PROCEDURE)
     Route: 048
  8. LEVOTHYROXINE. [Concomitant]
     Active Substance: LEVOTHYROXINE
     Indication: HYPOTHYROIDISM
     Dosage: 0.5 DF, QD (NOT ON SUNDAY)
     Route: 048
  9. GSK1120212 [Suspect]
     Active Substance: TRAMETINIB
     Indication: ASTROCYTOMA, LOW GRADE
     Dosage: 1 MG, QD
     Route: 048
     Dates: start: 20161220
  10. ZOLOFT [Concomitant]
     Active Substance: SERTRALINE HYDROCHLORIDE
     Indication: PRODUCT USED FOR UNKNOWN INDICATION
     Dosage: 1 DF, QD
     Route: 048
  11. RISPERDAL [Concomitant]
     Active Substance: RISPERIDONE
     Indication: PRODUCT USED FOR UNKNOWN INDICATION
     Dosage: 1 DF, QD (BEDTIME)
     Route: 048
  12. ONDANSETRON [Concomitant]
     Active Substance: ONDANSETRON
     Indication: PRODUCT USED FOR UNKNOWN INDICATION
     Dosage: 1 DF, PRN (EVERY 8 HOURS)
     Route: 048
  13. RISPERIDONE. [Concomitant]
     Active Substance: RISPERIDONE
     Indication: PRODUCT USED FOR UNKNOWN INDICATION
     Dosage: 1 DF, QD (AT BEDTIME)
     Route: 065

REACTIONS (20)
  - Dermatitis acneiform [Recovering/Resolving]
  - Affect lability [Unknown]
  - Heart rate increased [Unknown]
  - Anaemia [Recovering/Resolving]
  - Folliculitis [Recovered/Resolved]
  - Skin fissures [Unknown]
  - Lip dry [Unknown]
  - Chapped lips [Recovering/Resolving]
  - Dermatitis exfoliative [Recovering/Resolving]
  - Skin erosion [Unknown]
  - Immunodeficiency [Unknown]
  - Papule [Recovered/Resolved]
  - Irritability [Unknown]
  - Blood pressure decreased [Unknown]
  - Rash pustular [Unknown]
  - Scab [Unknown]
  - Macule [Unknown]
  - Angular cheilitis [Recovered/Resolved]
  - Pain [Unknown]
  - Abnormal behaviour [Unknown]

NARRATIVE: CASE EVENT DATE: 20170114
